FAERS Safety Report 8263372-6 (Version None)
Quarter: 2012Q1

REPORT INFORMATION
  Report Type: 
  Country: None (occurrence: None)
  Receive Date: 20120327
  Receipt Date: 20110129
  Transmission Date: 20120608
  Serious: Yes (Other)
  Sender: FDA-Public Use
  Company Number: PHHY2010US22426

PATIENT
  Age: 81 Year
  Sex: Female

DRUGS (2)
  1. GLEEVEC [Suspect]
     Indication: CHRONIC MYELOID LEUKAEMIA
     Dosage: 200 MG ON THE FIRST DAY AND 300 MG ON THE SECOND DAY CONTINUED ALTERNATIVELY, ORAL, 400 MG, QD, ORAL
     Route: 048
     Dates: start: 20090114
  2. GLEEVEC [Suspect]
     Indication: CHRONIC MYELOID LEUKAEMIA
     Dosage: 200 MG ON THE FIRST DAY AND 300 MG ON THE SECOND DAY CONTINUED ALTERNATIVELY, ORAL, 400 MG, QD, ORAL
     Route: 048
     Dates: start: 20090114

REACTIONS (9)
  - NEUROPATHY PERIPHERAL [None]
  - DRY SKIN [None]
  - DRUG INEFFECTIVE [None]
  - BURNING SENSATION [None]
  - PAIN [None]
  - PAIN IN EXTREMITY [None]
  - PRURITUS [None]
  - FATIGUE [None]
  - HYPOKINESIA [None]
